FAERS Safety Report 7577955-X (Version None)
Quarter: 2011Q2

REPORT INFORMATION
  Report Type: 
  Country: None (occurrence: None)
  Receive Date: 20110628
  Receipt Date: 20110613
  Transmission Date: 20111010
  Serious: Yes (Hospitalization)
  Sender: FDA-Public Use
  Company Number: IT-ROCHE-784097

PATIENT
  Sex: Female

DRUGS (5)
  1. TORADOL [Suspect]
     Dosage: FREQUENCY: AS PER NECCESSARY
     Route: 042
     Dates: start: 20110515, end: 20110515
  2. ISOLYTE [Concomitant]
  3. ENOXAPARIN SODIUM [Concomitant]
     Dates: start: 20110514, end: 20110517
  4. ZANTAC [Concomitant]
  5. AUGMENTIN '125' [Suspect]
     Indication: ANTIBIOTIC PROPHYLAXIS
     Dosage: 200 MG POWDER FOR INFUSION
     Route: 048
     Dates: start: 20110514, end: 20110517

REACTIONS (3)
  - ANURIA [None]
  - HAEMATURIA [None]
  - RENAL FAILURE ACUTE [None]
